FAERS Safety Report 19106007 (Version 1)
Quarter: 2021Q2

REPORT INFORMATION
  Report Type: Spontaneous
  Country: NL (occurrence: NL)
  Receive Date: 20210408
  Receipt Date: 20210408
  Transmission Date: 20210717
  Serious: Yes (Other)
  Sender: FDA-Public Use
  Company Number: NL-AUROBINDO-AUR-APL-2021-014265

PATIENT
  Sex: Female
  Weight: 56 kg

DRUGS (4)
  1. CLOPIDOGREL [Concomitant]
     Active Substance: CLOPIDOGREL BISULFATE
     Indication: PRODUCT USED FOR UNKNOWN INDICATION
     Dosage: 75 MILLIGRAM (TABLET)
     Route: 065
  2. BARNIDIPINE [Concomitant]
     Active Substance: BARNIDIPINE
     Indication: PRODUCT USED FOR UNKNOWN INDICATION
     Dosage: MODIFIED?RELEASE CAPSULE, 20 MG (MILLIGRAMS)
     Route: 065
  3. TRAMADOL 50 MG CAPSULES [Suspect]
     Active Substance: TRAMADOL
     Indication: HERPES ZOSTER
     Dosage: 50 MILLIGRAM, TWO TIMES A DAY (2 X PER DAY 1 PIECE)
     Route: 065
     Dates: start: 20210322, end: 20210323
  4. ATORVASTATIN [Concomitant]
     Active Substance: ATORVASTATIN
     Indication: PRODUCT USED FOR UNKNOWN INDICATION
     Dosage: 20 MILLIGRAM (TABLET)
     Route: 065

REACTIONS (1)
  - Syncope [Recovered/Resolved]
